FAERS Safety Report 6029112-6 (Version None)
Quarter: 2008Q4

REPORT INFORMATION
  Report Type: 
  Country: None (occurrence: None)
  Receive Date: 20081230
  Receipt Date: 20081217
  Transmission Date: 20090506
  Serious: Yes (Disabling)
  Sender: FDA-Public Use
  Company Number: 2008-188644-NL

PATIENT
  Age: 29 Year
  Sex: Female

DRUGS (1)
  1. MARVELON [Suspect]
     Indication: CONTRACEPTION
     Dosage: 1 DF ORAL
     Route: 048
     Dates: start: 20060101

REACTIONS (2)
  - HYPOAESTHESIA [None]
  - MUSCULAR WEAKNESS [None]
